FAERS Safety Report 24427884 (Version 2)
Quarter: 2024Q4

REPORT INFORMATION
  Report Type: Spontaneous
  Country: PT (occurrence: PT)
  Receive Date: 20241011
  Receipt Date: 20241023
  Transmission Date: 20250115
  Serious: Yes (Other)
  Sender: HIKMA
  Company Number: None

PATIENT

DRUGS (1)
  1. IRINOTECAN [Suspect]
     Active Substance: IRINOTECAN
     Indication: Pancreatic neoplasm
     Dosage: 205.5 MILLIGRAM, CYCLICAL
     Route: 042
     Dates: start: 20240923, end: 20240923

REACTIONS (3)
  - Tongue paralysis [Recovered/Resolved]
  - Tongue discomfort [Recovered/Resolved]
  - Aphasia [Recovered/Resolved]

NARRATIVE: CASE EVENT DATE: 20240923
